FAERS Safety Report 9921980 (Version 1)
Quarter: 2014Q1

REPORT INFORMATION
  Report Type: Spontaneous
  Country: US (occurrence: None)
  Receive Date: 20140221
  Receipt Date: 20140221
  Transmission Date: 20141002
  Serious: Yes (Other)
  Sender: FDA-Public Use
  Company Number: None

PATIENT
  Age: 6 Year
  Sex: Female
  Weight: 18.14 kg

DRUGS (1)
  1. LEVETIRACETAM [Suspect]
     Indication: CONVULSION
     Dosage: TWICE DAILY ORAL (G-TUBE)
     Route: 048
     Dates: start: 20140105, end: 20140113

REACTIONS (4)
  - Irritability [None]
  - Restlessness [None]
  - Cough [None]
  - Cerebral palsy [None]
